FAERS Safety Report 18223819 (Version 1)
Quarter: 2020Q3

REPORT INFORMATION
  Report Type: Spontaneous
  Country: FR (occurrence: FR)
  Receive Date: 20200902
  Receipt Date: 20200902
  Transmission Date: 20201103
  Serious: Yes (Life-Threatening, Hospitalization)
  Sender: FDA-Public Use
  Company Number: FR-TEIKOKU PHARMA USA, INC.-FR-2020TEI000079

PATIENT
  Age: 52 Year
  Sex: Male

DRUGS (1)
  1. DOCETAXEL INJECTION (NON?ALCOHOL FORMULA) [Suspect]
     Active Substance: DOCETAXEL
     Indication: PROSTATE CANCER
     Dosage: 75 MG/M2, EVERY 3 WEEKS
     Route: 042
     Dates: start: 201604

REACTIONS (2)
  - Myositis [Recovered/Resolved]
  - Fasciitis [Recovered/Resolved]

NARRATIVE: CASE EVENT DATE: 2016
